FAERS Safety Report 8887078 (Version 1)
Quarter: 2012Q4

REPORT INFORMATION
  Report Type: 
  Country: AU (occurrence: AU)
  Receive Date: 20121105
  Receipt Date: 20121105
  Transmission Date: 20130627
  Serious: Yes (Other)
  Sender: FDA-Public Use
  Company Number: AU-ROCHE-1149502

PATIENT
  Sex: Female

DRUGS (6)
  1. HERCEPTIN [Suspect]
     Indication: PRODUCT USED FOR UNKNOWN INDICATION
     Dosage: 103 doses
     Route: 065
  2. XELODA [Suspect]
     Indication: PRODUCT USED FOR UNKNOWN INDICATION
     Route: 065
  3. LETROZOLE [Concomitant]
  4. EXEMESTANE [Concomitant]
  5. TAMOXIFEN [Concomitant]
  6. TYKERB [Concomitant]

REACTIONS (8)
  - Lymphadenopathy [Recovered/Resolved]
  - Disease progression [Unknown]
  - Muscular weakness [Not Recovered/Not Resolved]
  - Palmar-plantar erythrodysaesthesia syndrome [Unknown]
  - Drug ineffective [Not Recovered/Not Resolved]
  - Lymphoedema [Unknown]
  - Rash pruritic [Unknown]
  - Oedema [Unknown]
